FAERS Safety Report 21795461 (Version 1)
Quarter: 2022Q4

REPORT INFORMATION
  Report Type: Spontaneous
  Country: US (occurrence: US)
  Receive Date: 20221229
  Receipt Date: 20221229
  Transmission Date: 20230113
  Serious: No
  Sender: FDA-Public Use
  Company Number: US-ABBVIE-4252280

PATIENT
  Sex: Male

DRUGS (1)
  1. VENCLEXTA [Suspect]
     Active Substance: VENETOCLAX
     Indication: Myelodysplastic syndrome
     Dosage: FORM STRENGTH: 100 MG?TAKE 4 TABLET(S) BY MOUTH (400MG) EVERY DAY WITH FOOD 3 WEEK(S) ON, 1 WEEK(...
     Route: 048

REACTIONS (1)
  - Off label use [Unknown]
